FAERS Safety Report 6509628-6 (Version None)
Quarter: 2009Q4

REPORT INFORMATION
  Report Type: 
  Country: None (occurrence: None)
  Receive Date: 20091222
  Receipt Date: 20091216
  Transmission Date: 20100525
  Serious: Yes (Death)
  Sender: FDA-Public Use
  Company Number: CA-ROCHE-675537

PATIENT
  Sex: Female
  Weight: 77 kg

DRUGS (7)
  1. OSELTAMIVIR [Suspect]
     Indication: DRUG USE FOR UNKNOWN INDICATION
     Dosage: ROUTE: NASOGASTRIC/SMALL BOWEL TUBE, LAST DOSE PRIOR TO SAE: 30 NOVEMBER 2009.
     Route: 050
     Dates: start: 20091128
  2. AMIODARONE [Concomitant]
     Dates: start: 20091127, end: 20091208
  3. PROPOFOL [Concomitant]
     Dosage: TOTAL DAILY DOSE: 14 MLS
     Dates: start: 20091127, end: 20091207
  4. REGULAR INSULIN [Concomitant]
     Dosage: TOTAL DAILY DOSE: 5.5
     Dates: start: 20091202, end: 20091207
  5. ZANTAC [Concomitant]
     Dates: start: 20091205, end: 20091207
  6. FLAGYL [Concomitant]
     Dates: start: 20091205, end: 20091207
  7. METROPOLOL COMP [Concomitant]
     Dosage: DRUG NAME: METROPOLOL
     Dates: start: 20091206, end: 20091207

REACTIONS (1)
  - HAEMORRHAGE INTRACRANIAL [None]
